FAERS Safety Report 8888092 (Version 3)
Quarter: 2013Q1

REPORT INFORMATION
  Report Type: Report from Study
  Country: IT (occurrence: IT)
  Receive Date: 20121106
  Receipt Date: 20130306
  Transmission Date: 20140127
  Serious: Yes (Other)
  Sender: FDA-Public Use
  Company Number: IT-BRISTOL-MYERS SQUIBB COMPANY-17079500

PATIENT
  Age: 58 Year
  Sex: Female
  Weight: 56 kg

DRUGS (4)
  1. PACLITAXEL [Suspect]
     Indication: OVARIAN CANCER
     Dosage: LAST DOSE: 21MAY12?20JAN12-260MG
     Route: 039
     Dates: start: 20120120
  2. CARBOPLATIN [Suspect]
     Indication: OVARIAN CANCER
     Dosage: LAST DOSE: 21MAY12?20JAN12-430MG
     Route: 042
     Dates: start: 20120120
  3. BEVACIZUMAB [Suspect]
     Indication: OVARIAN CANCER
     Dosage: INF SOLN?20JAN12-825MG?RECENT DOSE 21MAY12
     Route: 042
     Dates: start: 20120120, end: 20120625
  4. EUTIROX [Concomitant]
     Dates: start: 2008

REACTIONS (1)
  - Renal artery occlusion [Not Recovered/Not Resolved]
